FAERS Safety Report 6623233 (Version 5)
Quarter: 2013Q3

REPORT INFORMATION
  Report Type: Spontaneous
  Country: CA (occurrence: CA)
  Receive Date: 20080424
  Receipt Date: 20130822
  Transmission Date: 20140515
  Serious: Yes (Hospitalization)
  Sender: FDA-Public Use
  Company Number: CA-ROCHE-559525

PATIENT
  Age: 63 Year
  Sex: Male

DRUGS (9)
  1. NAPROXEN [Suspect]
     Indication: PRODUCT USED FOR UNKNOWN INDICATION
     Route: 065
  2. COCAINE [Interacting]
     Indication: PRODUCT USED FOR UNKNOWN INDICATION
     Route: 065
  3. TENOFOVIR [Interacting]
     Indication: HIV INFECTION
     Route: 065
  4. LAMIVUDINE [Concomitant]
  5. LOPINAVIR [Concomitant]
  6. RITONAVIR [Concomitant]
  7. OLANZAPINE [Concomitant]
  8. PAROXETINE [Concomitant]
  9. BUPROPION [Concomitant]

REACTIONS (15)
  - Renal failure acute [Unknown]
  - Rhabdomyolysis [Unknown]
  - Toxicity to various agents [Unknown]
  - Haematemesis [Unknown]
  - Blood creatine phosphokinase increased [Unknown]
  - Blood creatinine increased [Unknown]
  - Blood urea increased [Unknown]
  - CD4 lymphocytes decreased [Unknown]
  - Creatinine renal clearance decreased [Unknown]
  - Drug interaction [Unknown]
  - Hemiparesis [Unknown]
  - Pyrexia [Unknown]
  - Viral load decreased [Unknown]
  - Poisoning [Unknown]
  - Drug abuse [Unknown]
